FAERS Safety Report 6031967-6 (Version None)
Quarter: 2008Q4

REPORT INFORMATION
  Report Type: 
  Country: None (occurrence: None)
  Receive Date: 20081231
  Receipt Date: 20080929
  Transmission Date: 20090506
  Serious: Yes (Other)
  Sender: FDA-Public Use
  Company Number: 178373USA

PATIENT
  Age: 20 Year
  Sex: Male

DRUGS (3)
  1. LAMOTRIGINE [Suspect]
     Indication: CONVULSION
     Dosage: (150 MG) ,ORAL
     Route: 048
     Dates: start: 20080912, end: 20080924
  2. LAMOTRIGINE [Suspect]
  3. LAMOTRIGINE [Suspect]

REACTIONS (2)
  - GRAND MAL CONVULSION [None]
  - PETIT MAL EPILEPSY [None]
